FAERS Safety Report 15411739 (Version 2)
Quarter: 2018Q4

REPORT INFORMATION
  Report Type: Spontaneous
  Country: AU (occurrence: AU)
  Receive Date: 20180921
  Receipt Date: 20181003
  Transmission Date: 20190204
  Serious: Yes (Other)
  Sender: FDA-Public Use
  Company Number: AU-ROCHE-2186597

PATIENT
  Sex: Female

DRUGS (1)
  1. OCREVUS [Suspect]
     Active Substance: OCRELIZUMAB
     Indication: MULTIPLE SCLEROSIS
     Dosage: 1A INFUSION ON 8-AUG (YEAR NOT REPORTED)?SHE RECEIVED 2 HALF INFUSIONS
     Route: 065

REACTIONS (6)
  - Neuropathy peripheral [Unknown]
  - Hypokinesia [Unknown]
  - Extravasation [Unknown]
  - Injection site pain [Not Recovered/Not Resolved]
  - Infusion related reaction [Unknown]
  - Gait disturbance [Unknown]
